FAERS Safety Report 7655492-1 (Version None)
Quarter: 2011Q3

REPORT INFORMATION
  Report Type: 
  Country: None (occurrence: None)
  Receive Date: 20110729
  Receipt Date: 20110718
  Transmission Date: 20111222
  Serious: Yes (Hospitalization)
  Sender: FDA-Public Use
  Company Number: 2011VY000036

PATIENT
  Age: 21 Year
  Sex: Female

DRUGS (6)
  1. SUMATRIPTAN SUCCINATE [Concomitant]
  2. METOCLOPRAMIDE [Concomitant]
  3. OMEPRAZOLE [Concomitant]
  4. IBUPROFEN [Concomitant]
  5. CYCLIZINE [Concomitant]
  6. TRAMADOL HYDROCHLORIDE [Suspect]
     Indication: ABDOMINAL PAIN
     Dosage: 50 MG;TID; 100 MG;QID

REACTIONS (2)
  - ADRENAL INSUFFICIENCY [None]
  - HYPOTHALAMO-PITUITARY DISORDER [None]
